FAERS Safety Report 8634195 (Version 6)
Quarter: 2012Q4

REPORT INFORMATION
  Report Type: 
  Country: US (occurrence: US)
  Receive Date: 20120626
  Receipt Date: 20120910
  Transmission Date: 20130627
  Serious: No
  Sender: FDA-Public Use
  Company Number: US-PFIZER INC-2012151118

PATIENT
  Age: 73 Year
  Sex: Male
  Weight: 94.33 kg

DRUGS (21)
  1. LYRICA [Suspect]
     Indication: NEURALGIA
     Dosage: 25 mg, 3x/day
     Route: 048
     Dates: end: 2011
  2. LYRICA [Interacting]
     Indication: NEURALGIA
     Dosage: 25 mg, 3x/day
     Dates: start: 201206
  3. LYRICA [Interacting]
     Dosage: 25 mg, 2x/day
     Dates: start: 201207
  4. LYRICA [Interacting]
     Dosage: 25 mg, 3x/day
     Route: 048
     Dates: end: 20120820
  5. LYRICA [Interacting]
     Dosage: UNK
     Dates: start: 20090429
  6. LYRICA [Interacting]
     Dosage: UNK
     Dates: start: 20120514
  7. DIAZEPAM [Interacting]
     Indication: SLEEP DISORDER
     Dosage: UNK, daily
  8. TEMAZEPAM [Concomitant]
     Indication: SLEEP DISORDER
     Dosage: 80 mg, 1x/day (daily)
  9. TEMAZEPAM [Concomitant]
     Dosage: 30 mg, capsule, at bedtime
     Route: 048
  10. AMLODIPINE [Concomitant]
     Indication: HYPERTENSION
     Dosage: 10 mg, daily
  11. CARVEDILOL [Concomitant]
     Indication: HYPERTENSION
     Dosage: 3.125 mg, Daily
     Route: 048
  12. CARVEDILOL [Concomitant]
     Dosage: 3.125 mg, 2x/day
  13. LISINOPRIL [Concomitant]
     Indication: HYPERTENSION
     Dosage: 40 mg,1x/day
     Route: 048
  14. PLAVIX [Concomitant]
     Indication: HYPERTENSION
     Dosage: 75 mg, Daily
     Route: 048
  15. PLAVIX [Concomitant]
     Indication: BLOOD CHOLESTEROL INCREASED
  16. VITAMIN B COMPLEX [Concomitant]
     Dosage: UNK, 1x/day
     Route: 048
  17. PRAVASTATIN SODIUM [Concomitant]
     Indication: BLOOD CHOLESTEROL INCREASED
     Dosage: 20 mg, 1x/day
  18. TYLENOL ARTHRITIS CAPLET [Concomitant]
     Indication: PAIN
     Dosage: 1300 mg, every 8 hours as needed
     Route: 048
  19. NORVASC [Concomitant]
     Dosage: 10 mg, 1x/day
     Route: 048
  20. ZOSTRIX [Concomitant]
     Dosage: 0.025% , 1 appl topical 3x/day
     Route: 061
  21. VITAMIN B12 [Concomitant]
     Dosage: 100 ug, 1x/day
     Route: 048

REACTIONS (6)
  - Drug ineffective [Not Recovered/Not Resolved]
  - Amnesia [Not Recovered/Not Resolved]
  - Somnolence [Recovered/Resolved]
  - Fatigue [Unknown]
  - Insomnia [Unknown]
  - Drug interaction [Unknown]
